FAERS Safety Report 14598555 (Version 1)
Quarter: 2018Q1

REPORT INFORMATION
  Report Type: Report from Study
  Country: BR (occurrence: BR)
  Receive Date: 20180305
  Receipt Date: 20180305
  Transmission Date: 20180509
  Serious: Yes (Congenital Anomaly)
  Sender: FDA-Public Use
  Company Number: BR-MYLANLABS-2018M1011927

PATIENT
  Sex: Male
  Weight: 2.37 kg

DRUGS (2)
  1. EFAVIRENZ,LAMIVUDINE,TENOFOVIR MYLAN [Suspect]
     Active Substance: EFAVIRENZ\LAMIVUDINE\TENOFOVIR DISOPROXIL FUMARATE
     Indication: HIV INFECTION
     Dosage: 1200 MG, QD
     Route: 064
     Dates: start: 20170821
  2. FERROUS SULFATE. [Suspect]
     Active Substance: FERROUS SULFATE
     Indication: PRODUCT USED FOR UNKNOWN INDICATION
     Route: 064

REACTIONS (2)
  - Congenital skin dimples [Unknown]
  - Foetal exposure during pregnancy [Recovered/Resolved]
